FAERS Safety Report 9879289 (Version 1)
Quarter: 2014Q1

REPORT INFORMATION
  Report Type: Spontaneous
  Country: SE (occurrence: SE)
  Receive Date: 20140206
  Receipt Date: 20140206
  Transmission Date: 20141002
  Serious: Yes (Other)
  Sender: FDA-Public Use
  Company Number: SE-TEVA-460903ISR

PATIENT
  Age: 90 Year
  Sex: Male

DRUGS (1)
  1. VENLAFAXIN RATIOPHARM 75 MG DEPOTKAPSEL [Suspect]

REACTIONS (2)
  - Hallucination [Not Recovered/Not Resolved]
  - Fall [Not Recovered/Not Resolved]
